FAERS Safety Report 4678378-3 (Version None)
Quarter: 2005Q2

REPORT INFORMATION
  Report Type: 
  Country: None (occurrence: None)
  Receive Date: 20050601
  Receipt Date: 20050523
  Transmission Date: 20051028
  Serious: Yes (Other)
  Sender: FDA-Public Use
  Company Number: US-KINGPHARMUSA00001-K200500666

PATIENT
  Sex: Female

DRUGS (2)
  1. ALTACE [Suspect]
  2. SIMVASTATIN [Concomitant]

REACTIONS (1)
  - CEREBROVASCULAR ACCIDENT [None]
